FAERS Safety Report 7580323-8 (Version None)
Quarter: 2011Q2

REPORT INFORMATION
  Report Type: 
  Country: None (occurrence: None)
  Receive Date: 20110629
  Receipt Date: 20110621
  Transmission Date: 20111010
  Serious: Yes (Hospitalization)
  Sender: FDA-Public Use
  Company Number: US-ROCHE-745251

PATIENT
  Sex: Male
  Weight: 77.1 kg

DRUGS (5)
  1. METHOTREXATE [Concomitant]
     Route: 048
     Dates: start: 20071206
  2. LEVOTHYROXINE SODIUM [Concomitant]
     Dates: start: 20101008
  3. METHOTREXATE [Concomitant]
     Route: 048
     Dates: start: 20061206, end: 20071107
  4. TOCILIZUMAB [Suspect]
     Indication: RHEUMATOID ARTHRITIS
     Dosage: LAST DOSE PRIOR TO SAE: 04 NOVEMBER 2010; PERMANENTLY DISCONTINUED.
     Route: 042
     Dates: start: 20061108, end: 20110224
  5. TOCILIZUMAB [Suspect]
     Dosage: PATIENT COMPLETED A DOUBLE BLINDED MRA CORE STUDY WA17824, CENTRE NO: 51188, RANDOMISATION O: 310607
     Route: 042

REACTIONS (1)
  - MYOCARDIAL INFARCTION [None]
